FAERS Safety Report 9154316 (Version 1)
Quarter: 2013Q1

REPORT INFORMATION
  Report Type: Spontaneous
  Country: US (occurrence: US)
  Receive Date: 20130311
  Receipt Date: 20130311
  Transmission Date: 20140127
  Serious: Yes (Other)
  Sender: FDA-Public Use
  Company Number: US-PFIZER INC-2013079964

PATIENT
  Sex: Female

DRUGS (1)
  1. LYRICA [Suspect]
     Dosage: UNK

REACTIONS (12)
  - Convulsion [Unknown]
  - Withdrawal syndrome [Unknown]
  - Anger [Unknown]
  - Screaming [Unknown]
  - Feeling abnormal [Unknown]
  - Personality disorder [Unknown]
  - Abnormal behaviour [Unknown]
  - Dyskinesia [Unknown]
  - Nasopharyngitis [Unknown]
  - Panic attack [Unknown]
  - Emotional disorder [Unknown]
  - Tinnitus [Unknown]
